FAERS Safety Report 7702143-3 (Version None)
Quarter: 2011Q3

REPORT INFORMATION
  Report Type: 
  Country: None (occurrence: None)
  Receive Date: 20110822
  Receipt Date: 20110817
  Transmission Date: 20111222
  Serious: Yes (Death)
  Sender: FDA-Public Use
  Company Number: CA-BAYER-2011-058892

PATIENT
  Age: 18 Year
  Sex: Female
  Weight: 79.819 kg

DRUGS (9)
  1. NIMBEX [Concomitant]
  2. MERREM [Concomitant]
     Indication: PNEUMONIA
  3. PRECEDEX [Concomitant]
  4. SENNOSIDE [Concomitant]
  5. YASMIN [Suspect]
     Indication: CONTRACEPTION
     Dosage: UNK, QD
     Route: 048
  6. PIPERACILLIN AND TAZOBACTAM [Concomitant]
     Indication: PNEUMONIA
  7. RANITIDINE [Concomitant]
     Indication: PROPHYLAXIS
  8. CONCERTA [Suspect]
     Indication: ATTENTION DEFICIT/HYPERACTIVITY DISORDER
     Dosage: 54 MG, QD
     Route: 048
  9. VANCOMYCIN [Concomitant]
     Indication: PNEUMONIA

REACTIONS (2)
  - CEREBRAL VENOUS THROMBOSIS [None]
  - CEREBRAL HAEMORRHAGE [None]
